FAERS Safety Report 23629010 (Version 1)
Quarter: 2024Q1

REPORT INFORMATION
  Report Type: Spontaneous
  Country: BR (occurrence: BR)
  Receive Date: 20240313
  Receipt Date: 20240313
  Transmission Date: 20240410
  Serious: Yes (Other)
  Sender: FDA-Public Use
  Company Number: BR-002147023-NVSC2024BR051703

PATIENT
  Age: 88 Year
  Sex: Female

DRUGS (5)
  1. DIOVAN HCT [Suspect]
     Active Substance: HYDROCHLOROTHIAZIDE\VALSARTAN
     Indication: Product used for unknown indication
     Dosage: UNK (160 /12.5 MG  28 TABLETS)
     Route: 065
  2. DIOVAN HCT [Suspect]
     Active Substance: HYDROCHLOROTHIAZIDE\VALSARTAN
     Dosage: UNK (80 /12.5 MG 28 TABLETS) IN THE MORNING,
     Route: 065
  3. DIOVAN HCT [Suspect]
     Active Substance: HYDROCHLOROTHIAZIDE\VALSARTAN
     Dosage: UNK (80/25 MG)
     Route: 065
  4. DIOVAN [Suspect]
     Active Substance: VALSARTAN
     Indication: Product used for unknown indication
     Dosage: UNK, AT NIGHT
     Route: 065
  5. HYDROCHLOROTHIAZIDE [Suspect]
     Active Substance: HYDROCHLOROTHIAZIDE
     Indication: Product used for unknown indication
     Dosage: UNK ( BROKEN IN HALF)
     Route: 065

REACTIONS (8)
  - Hypertension [Recovered/Resolved]
  - Hypotension [Recovered/Resolved]
  - Blood pressure fluctuation [Recovered/Resolved]
  - Influenza [Unknown]
  - Nasopharyngitis [Unknown]
  - Dysphonia [Unknown]
  - Dizziness [Recovered/Resolved]
  - Product availability issue [Not Recovered/Not Resolved]
